FAERS Safety Report 12653943 (Version 1)
Quarter: 2016Q3

REPORT INFORMATION
  Report Type: Spontaneous
  Country: MX (occurrence: MX)
  Receive Date: 20160816
  Receipt Date: 20160816
  Transmission Date: 20161109
  Serious: Yes (Other)
  Sender: FDA-Public Use
  Company Number: MX-UCBSA-2016031066

PATIENT
  Age: 29 Year
  Sex: Female
  Weight: 72 kg

DRUGS (2)
  1. CIMZIA [Suspect]
     Active Substance: CERTOLIZUMAB PEGOL
     Indication: SPONDYLOARTHROPATHY
     Dosage: 400 MG, MONTHLY (QM)
     Route: 058
     Dates: start: 201405
  2. CIMZIA [Suspect]
     Active Substance: CERTOLIZUMAB PEGOL
     Indication: OFF LABEL USE

REACTIONS (3)
  - Abortion spontaneous [Not Recovered/Not Resolved]
  - Off label use [Unknown]
  - Pregnancy [Unknown]

NARRATIVE: CASE EVENT DATE: 201405
